FAERS Safety Report 6774480-0 (Version None)
Quarter: 2010Q2

REPORT INFORMATION
  Report Type: 
  Country: None (occurrence: None)
  Receive Date: 20100617
  Receipt Date: 20100607
  Transmission Date: 20101027
  Serious: Yes (Hospitalization)
  Sender: FDA-Public Use
  Company Number: PHHY2010DE28495

PATIENT
  Sex: Female
  Weight: 70 kg

DRUGS (4)
  1. ALISKIREN ALI+ [Suspect]
     Indication: HYPERTENSION
     Dosage: 150 MG PER DAY
     Route: 048
     Dates: start: 20090424
  2. EXFORGE [Suspect]
     Indication: HYPERTENSION
     Dosage: 160/5 MG PER DAY
     Route: 048
     Dates: start: 20080101
  3. HYDROCHLOROTHIAZIDE [Suspect]
     Indication: HYPERTENSION
     Dosage: 25 MG PER DAY
     Route: 048
  4. HALOPERIDOL [Concomitant]
     Indication: PARKINSONISM
     Dosage: 5 DROPS PER DAY
     Route: 048
     Dates: start: 20020101

REACTIONS (1)
  - CARDIOVASCULAR DISORDER [None]
